FAERS Safety Report 5812712-3 (Version None)
Quarter: 2008Q3

REPORT INFORMATION
  Report Type: 
  Country: None (occurrence: None)
  Receive Date: 20080711
  Receipt Date: 20080625
  Transmission Date: 20090109
  Serious: Yes (Other)
  Sender: FDA-Public Use
  Company Number: CTI_00956_2008

PATIENT
  Sex: Female
  Weight: 87.0906 kg

DRUGS (5)
  1. ZYFLO [Suspect]
     Indication: DRUG USE FOR UNKNOWN INDICATION
     Dosage: (DF ORAL)
     Route: 048
     Dates: start: 20051125, end: 20080305
  2. ZYFLO CR [Suspect]
     Indication: ASTHMA
     Dosage: (1200 MG BID ORAL), (600 MG BID ORAL)
     Route: 048
     Dates: start: 20080101
  3. ZYFLO CR [Suspect]
     Indication: ASTHMA
     Dosage: (1200 MG BID ORAL), (600 MG BID ORAL)
     Route: 048
     Dates: start: 20080305
  4. ZYFLO CR [Suspect]
     Indication: ASTHMA
     Dosage: (1200 MG BID ORAL), (600 MG QID ORAL)
     Route: 048
     Dates: start: 20080625
  5. ADVAIR DISKUS 100/50 [Concomitant]

REACTIONS (3)
  - ALANINE AMINOTRANSFERASE INCREASED [None]
  - ASPARTATE AMINOTRANSFERASE INCREASED [None]
  - INFECTIOUS MONONUCLEOSIS [None]
